FAERS Safety Report 8396913-9 (Version None)
Quarter: 2012Q2

REPORT INFORMATION
  Report Type: 
  Country: None (occurrence: None)
  Receive Date: 20120530
  Receipt Date: 20120521
  Transmission Date: 20120825
  Serious: Yes (Other)
  Sender: FDA-Public Use
  Company Number: US-ABBOTT-12P-163-0914788-00

PATIENT
  Age: 64 Year
  Sex: Female

DRUGS (9)
  1. SPIRONOLACTONE [Concomitant]
     Indication: BLOOD PRESSURE
  2. PREDNISONE TAB [Concomitant]
     Indication: CROHN'S DISEASE
     Dosage: TAPER DOWN TO 2 MG DAILY
  3. MULTI-VITAMINS [Concomitant]
     Indication: PRODUCT USED FOR UNKNOWN INDICATION
  4. ZEGERID [Concomitant]
     Indication: OESOPHAGEAL DISORDER
  5. FISH OIL [Concomitant]
     Indication: PRODUCT USED FOR UNKNOWN INDICATION
  6. HUMIRA [Suspect]
     Indication: CROHN'S DISEASE
     Dates: start: 20111214
  7. CALCIUM [Concomitant]
     Indication: PRODUCT USED FOR UNKNOWN INDICATION
  8. PENTASA [Concomitant]
     Indication: CROHN'S DISEASE
  9. ENZYME DIGESTIVE AID [Concomitant]
     Indication: DYSPEPSIA
     Dosage: PRIOR TO EACH MEAL

REACTIONS (9)
  - MENINGIOMA [None]
  - INJECTION SITE PAIN [None]
  - LOSS OF CONSCIOUSNESS [None]
  - HYPOKINESIA [None]
  - BURNING SENSATION [None]
  - CEREBROVASCULAR ACCIDENT [None]
  - FATIGUE [None]
  - BONE PAIN [None]
  - ARTHRALGIA [None]
